FAERS Safety Report 25956606 (Version 1)
Quarter: 2025Q4

REPORT INFORMATION
  Report Type: Report from Study
  Country: US (occurrence: US)
  Receive Date: 20251024
  Receipt Date: 20251024
  Transmission Date: 20260117
  Serious: Yes (Death)
  Sender: EISAI
  Company Number: US-Eisai-EC-2025-198658

PATIENT
  Age: 83 Year
  Sex: Female

DRUGS (1)
  1. LEQEMBI [Suspect]
     Active Substance: LECANEMAB-IRMB
     Indication: Product used for unknown indication
     Dosage: UNKNOWN DOSE AND FREQUENCY
     Route: 042
     Dates: start: 20250929, end: 20251013

REACTIONS (1)
  - Death [Fatal]

NARRATIVE: CASE EVENT DATE: 20251020
